FAERS Safety Report 12075307 (Version 2)
Quarter: 2016Q1

REPORT INFORMATION
  Report Type: Report from Study
  Country: CL (occurrence: CL)
  Receive Date: 20160212
  Receipt Date: 20160222
  Transmission Date: 20160526
  Serious: Yes (Other)
  Sender: FDA-Public Use
  Company Number: CL-ASTRAZENECA-2016SE15031

PATIENT
  Age: 19485 Day
  Sex: Male

DRUGS (6)
  1. AMITRIPTYLINE [Concomitant]
     Active Substance: AMITRIPTYLINE
     Dates: start: 20150212
  2. CLONAZEPAM. [Concomitant]
     Active Substance: CLONAZEPAM
     Dates: start: 20150212
  3. TICAGRELOR [Suspect]
     Active Substance: TICAGRELOR
     Indication: ISCHAEMIC HEART DISEASE PROPHYLAXIS
     Dosage: LOADING DOSE
     Route: 048
     Dates: start: 20150212
  4. TICAGRELOR [Suspect]
     Active Substance: TICAGRELOR
     Indication: ISCHAEMIC HEART DISEASE PROPHYLAXIS
     Route: 048
     Dates: start: 20150213, end: 20150304
  5. OMEPRAZOL [Concomitant]
     Active Substance: OMEPRAZOLE
     Dates: start: 20150212
  6. METROCLOPRAMIDA [Concomitant]
     Dates: start: 20150212, end: 20150216

REACTIONS (1)
  - Transient ischaemic attack [Recovered/Resolved]

NARRATIVE: CASE EVENT DATE: 20150213
